FAERS Safety Report 20866307 (Version 1)
Quarter: 2022Q2

REPORT INFORMATION
  Report Type: Spontaneous
  Country: US (occurrence: None)
  Receive Date: 20220523
  Receipt Date: 20220523
  Transmission Date: 20220721
  Serious: Yes (Hospitalization)
  Sender: FDA-Public Use
  Company Number: None

PATIENT
  Age: 61 Year
  Sex: Female

DRUGS (1)
  1. BOTOX [Suspect]
     Active Substance: ONABOTULINUMTOXINA
     Indication: Migraine without aura
     Dosage: 200 UNIT ?INJECT 1 VIAL IN THE MUSCLE INTO HEAD AND NECK MUSCLES EVERY 3 MONTHS? ?
     Dates: start: 20191105

REACTIONS (1)
  - Leukaemia [None]

NARRATIVE: CASE EVENT DATE: 20220523
